FAERS Safety Report 4640216-2 (Version None)
Quarter: 2005Q2

REPORT INFORMATION
  Report Type: 
  Country: None (occurrence: None)
  Receive Date: 20050420
  Receipt Date: 20050408
  Transmission Date: 20051028
  Serious: Yes (Hospitalization)
  Sender: FDA-Public Use
  Company Number: CN-JNJFOC-20050402406

PATIENT
  Age: 56 Year
  Sex: Male

DRUGS (1)
  1. NIZORAL [Suspect]
     Indication: ONYCHOMYCOSIS
     Route: 065

REACTIONS (2)
  - CHROMATURIA [None]
  - TRANSAMINASES INCREASED [None]
